FAERS Safety Report 5844359-7 (Version None)
Quarter: 2008Q3

REPORT INFORMATION
  Report Type: 
  Country: None (occurrence: None)
  Receive Date: 20080731
  Receipt Date: 20080619
  Transmission Date: 20090109
  Serious: No
  Sender: FDA-Public Use
  Company Number: US200711001968

PATIENT
  Age: 65 Year
  Sex: Male
  Weight: 98.4 kg

DRUGS (7)
  1. BYETTA [Suspect]
     Indication: TYPE 2 DIABETES MELLITUS
     Dosage: 5 UG, 2/D, SUBCUTANEOUS
     Route: 058
     Dates: start: 20080101, end: 20080201
  2. BYETTA [Suspect]
     Indication: TYPE 2 DIABETES MELLITUS
     Dosage: 5 UG, 2/D, SUBCUTANEOUS
     Route: 058
     Dates: start: 20071107
  3. BYETTA [Suspect]
     Indication: TYPE 2 DIABETES MELLITUS
     Dosage: 5 UG, 2/D, SUBCUTANEOUS
     Route: 058
     Dates: start: 20080201
  4. BYETTA [Suspect]
  5. PRANDIN /USA/ (REPAGLINIDE) [Concomitant]
  6. GLUCOPHAGE /USA/ (METFORMIN HYDROCHLORIDE) [Concomitant]
  7. GLIMEPIRIDE [Concomitant]

REACTIONS (3)
  - BLOOD GLUCOSE INCREASED [None]
  - INJECTION SITE ERYTHEMA [None]
  - WEIGHT DECREASED [None]
